FAERS Safety Report 7516706-1 (Version None)
Quarter: 2011Q2

REPORT INFORMATION
  Report Type: 
  Country: None (occurrence: None)
  Receive Date: 20110601
  Receipt Date: 20110523
  Transmission Date: 20111010
  Serious: Yes (Death, Life-Threatening, Hospitalization, Other)
  Sender: FDA-Public Use
  Company Number: TW-CELGENEUS-153-C5013-10120759

PATIENT
  Sex: Male
  Weight: 56.2 kg

DRUGS (179)
  1. LENALIDOMIDE [Suspect]
     Indication: MULTIPLE MYELOMA
     Dosage: 15 MILLIGRAM
     Route: 048
     Dates: start: 20101116, end: 20101207
  2. DULCOLAX [Concomitant]
     Dosage: 10 MILLIGRAM
     Route: 048
     Dates: start: 20101022, end: 20101122
  3. ZINC OXIDE [Concomitant]
     Route: 062
     Dates: start: 20101022, end: 20101112
  4. REPAGLINIDE [Concomitant]
     Dosage: 2 MILLIGRAM
     Route: 048
     Dates: start: 20101022, end: 20101122
  5. PRIMPERAN TAB [Concomitant]
     Dosage: 3 DOSAGE FORMS
     Route: 051
     Dates: start: 20101201, end: 20101201
  6. ALLERMIN [Concomitant]
     Dosage: 5 MILLIGRAM/MILLILITERS
     Route: 051
     Dates: start: 20101127, end: 20101128
  7. SMOFLIPID [Concomitant]
     Dosage: 1 DOSAGE FORMS
     Route: 041
     Dates: start: 20101118, end: 20101123
  8. LASIX [Concomitant]
     Dosage: 1 DOSAGE FORMS
     Route: 051
     Dates: start: 20101123, end: 20101124
  9. HUMULIN R [Concomitant]
     Dosage: 50 IU (INTERNATIONAL UNIT)
     Route: 051
     Dates: start: 20101125, end: 20101125
  10. HUMULIN R [Concomitant]
     Dosage: 35 IU (INTERNATIONAL UNIT)
     Route: 051
     Dates: start: 20101126, end: 20101129
  11. HUMULIN R [Concomitant]
     Dosage: 30 IU (INTERNATIONAL UNIT)
     Route: 051
     Dates: start: 20101201, end: 20101201
  12. HUMULIN R [Concomitant]
     Dosage: 15 IU (INTERNATIONAL UNIT)
     Route: 051
     Dates: start: 20101206
  13. NITRAZEPAM [Concomitant]
     Dosage: 16 DOSAGE FORMS
     Route: 051
     Dates: start: 20101125, end: 20101125
  14. DEXTROSE [Concomitant]
     Dosage: 500 OTHER
     Route: 041
     Dates: start: 20101125, end: 20101125
  15. DEXTROSE [Concomitant]
     Dosage: 2 DOSAGE FORMS
     Route: 041
     Dates: start: 20101201, end: 20101202
  16. AMIYU [Concomitant]
     Dosage: 1 DOSAGE FORMS
     Route: 041
     Dates: start: 20101125, end: 20101130
  17. AMIYU [Concomitant]
     Dosage: 200 MILLILITER
     Route: 041
     Dates: start: 20101130, end: 20101202
  18. HERBESSER [Concomitant]
     Dosage: 15 MILLIGRAM
     Route: 051
     Dates: start: 20101201, end: 20101202
  19. LACTUL [Concomitant]
     Route: 065
     Dates: start: 20101201, end: 20101203
  20. SENOKOT [Concomitant]
     Dosage: 15 MILLIGRAM
     Route: 065
     Dates: start: 20101130, end: 20101130
  21. ULTRACET [Concomitant]
     Dosage: 4 TABLET
     Route: 065
     Dates: start: 20101124, end: 20101124
  22. ZINC OXIDE [Concomitant]
     Route: 062
     Dates: start: 20101201
  23. AUGMENTIN [Concomitant]
     Dosage: 3600 MILLIGRAM
     Route: 051
     Dates: start: 20101117, end: 20101117
  24. MEGESTROL ACETATE [Concomitant]
     Dosage: 40 MILLIGRAM
     Route: 065
     Dates: start: 20101124, end: 20101124
  25. TRAMADOL HCL [Concomitant]
     Dosage: 4 CAPSULE
     Route: 065
     Dates: start: 20101128
  26. ALLERMIN [Concomitant]
     Dosage: 1 DOSAGE FORMS
     Route: 051
     Dates: start: 20101125, end: 20101126
  27. ALLERMIN [Concomitant]
     Dosage: 5 MILLIGRAM/MILLILITERS
     Route: 051
     Dates: start: 20101128, end: 20101129
  28. ALLERMIN [Concomitant]
     Dosage: 1 DOSAGE FORMS
     Route: 051
     Dates: start: 20101204, end: 20101205
  29. LASIX [Concomitant]
     Dosage: 1 DOSAGE FORMS
     Route: 051
     Dates: start: 20101120, end: 20101121
  30. CALGLON [Concomitant]
     Dosage: 2 DOSAGE FORMS
     Route: 051
     Dates: start: 20101124, end: 20101125
  31. HUMULIN R [Concomitant]
     Dosage: 40 IU (INTERNATIONAL UNIT)
     Route: 058
     Dates: start: 20101125, end: 20101126
  32. HUMULIN R [Concomitant]
     Dosage: 25 IU (INTERNATIONAL UNIT)
     Route: 051
     Dates: start: 20101201, end: 20101202
  33. HUMULIN R [Concomitant]
     Dosage: 4 IU (INTERNATIONAL UNIT)
     Route: 058
     Dates: start: 20101205, end: 20101206
  34. LEVOPHED [Concomitant]
     Dosage: 2 DOSAGE FORMS
     Route: 051
     Dates: start: 20101129, end: 20101130
  35. LEVOPHED [Concomitant]
     Dosage: 4 DOSAGE FORMS
     Route: 051
     Dates: start: 20101205
  36. NEXIUM [Concomitant]
     Dosage: 40 MILLIGRAM
     Route: 065
     Dates: start: 20101127
  37. DEXTROSE [Concomitant]
     Dosage: 500 UNKNOWN
     Route: 041
     Dates: start: 20101126, end: 20101207
  38. DEXTROSE [Concomitant]
     Dosage: 2 DOSAGE FORMS
     Route: 041
     Dates: start: 20101204, end: 20101205
  39. TRAMADOL HYDROCHLORIDE [Concomitant]
     Dosage: 1.5 DOSAGE FORMS
     Route: 051
     Dates: start: 20101125, end: 20101125
  40. ROLIKAN [Concomitant]
     Route: 041
     Dates: start: 20101202, end: 20101203
  41. PLATELETS [Concomitant]
     Indication: THROMBOCYTOPENIA
     Route: 065
     Dates: start: 20101125, end: 20101125
  42. SCANOL [Concomitant]
     Dosage: 2000 MILLIGRAM
     Route: 065
     Dates: start: 20101124, end: 20101207
  43. AUGMENTIN [Concomitant]
     Dosage: 2400 MILLIGRAM
     Route: 051
     Dates: start: 20101117, end: 20101117
  44. MEGESTROL ACETATE [Concomitant]
     Dosage: 40 MILLIGRAM
     Route: 048
     Dates: start: 20101108, end: 20101124
  45. TRAMADOL HCL [Concomitant]
     Dosage: 2 UNKNOWN
     Route: 051
     Dates: start: 20101113, end: 20101124
  46. ALLERMIN [Concomitant]
     Dosage: 5 MILLIGRAM/MILLILITERS
     Route: 051
     Dates: start: 20101125, end: 20101126
  47. ALLERMIN [Concomitant]
     Dosage: 5 MILLIGRAM/MILLILITERS
     Route: 051
     Dates: start: 20101129, end: 20101130
  48. ALLERMIN [Concomitant]
     Dosage: 5 MILLIGRAM/MILLILITERS
     Route: 051
     Dates: start: 20101205, end: 20101206
  49. GLYCAL-AMIN [Concomitant]
     Dosage: 1 DOSAGE FORMS
     Route: 041
     Dates: start: 20101116, end: 20101116
  50. PISUTAM [Concomitant]
     Dosage: 2.25 GRAM
     Route: 051
     Dates: start: 20101117, end: 20101118
  51. LASIX [Concomitant]
     Dosage: 24 DOSAGE FORMS
     Route: 051
     Dates: start: 20101124, end: 20101124
  52. MORPHINE [Concomitant]
     Dosage: 20 MILLIGRAM
     Route: 051
     Dates: start: 20101125, end: 20101126
  53. HUMULIN R [Concomitant]
     Dosage: 40 IU (INTERNATIONAL UNIT)
     Route: 051
     Dates: start: 20101125, end: 20101126
  54. HUMULIN R [Concomitant]
     Dosage: 10 IU (INTERNATIONAL UNIT)
     Route: 051
     Dates: start: 20101206, end: 20101206
  55. HUMULIN R [Concomitant]
     Dosage: 10 IU (INTERNATIONAL UNIT)
     Route: 051
     Dates: start: 20101206, end: 20101206
  56. HUMULIN R [Concomitant]
     Dosage: 10 IU (INTERNATIONAL UNIT)
     Route: 058
     Dates: start: 20101206
  57. DDAVP [Concomitant]
     Dosage: 4 DOSAGE FORMS
     Route: 051
     Dates: start: 20101124, end: 20101125
  58. NS [Concomitant]
     Dosage: 250 MILLILITER
     Route: 041
     Dates: start: 20101124, end: 20101125
  59. HEPARIN [Concomitant]
     Route: 051
     Dates: start: 20101124, end: 20101125
  60. HEPARIN [Concomitant]
     Route: 051
     Dates: start: 20101125, end: 20101201
  61. DEXTROSE [Concomitant]
     Dosage: 500 OTHER
     Route: 041
     Dates: start: 20101125, end: 20101126
  62. DEXTROSE [Concomitant]
     Dosage: 500 UNKNOWN
     Route: 041
     Dates: start: 20101125, end: 20101126
  63. CALCIUM GLUCONATE [Concomitant]
     Dosage: 3 DOSAGE FORMS
     Route: 051
     Dates: start: 20101125, end: 20101125
  64. TRAMADOL HYDROCHLORIDE [Concomitant]
     Dosage: 100 MILLIGRAM
     Route: 051
     Dates: start: 20101125, end: 20101126
  65. HERBESSER [Concomitant]
     Dosage: 60 UNKNOWN
     Route: 065
     Dates: start: 20101128, end: 20101128
  66. KAOPECTIN [Concomitant]
     Dosage: 4 DOSAGE FORMS
     Route: 065
     Dates: start: 20101203, end: 20101206
  67. ULTRACET [Concomitant]
     Dosage: 8
     Route: 048
     Dates: start: 20101113, end: 20101124
  68. BONEFOS [Concomitant]
     Dosage: 800 MILLIGRAM
     Route: 065
     Dates: start: 20101124, end: 20101124
  69. PRIMPERAN TAB [Concomitant]
     Dosage: 1 DOSAGE FORMS
     Route: 051
     Dates: start: 20101122, end: 20101123
  70. SODIUM CHLORIDE [Concomitant]
     Dosage: 1000 OTHER
     Route: 041
     Dates: start: 20101110, end: 20101112
  71. NORVASC [Concomitant]
     Dosage: 5 MILLIGRAM
     Route: 048
     Dates: start: 20101111, end: 20101124
  72. ALLERMIN [Concomitant]
     Dosage: 5 MILLIGRAM/MILLILITERS
     Route: 051
     Dates: start: 20101123, end: 20101124
  73. ALLERMIN [Concomitant]
     Dosage: 5 MILLIGRAM/MILLILITERS
     Route: 051
     Dates: start: 20101125, end: 20101126
  74. GLYCAL-AMIN [Concomitant]
     Route: 041
     Dates: start: 20101116, end: 20101117
  75. SMOFLIPID [Concomitant]
     Dosage: 1 DOSAGE FORMS
     Route: 041
     Dates: start: 20101201, end: 20101204
  76. SMOFLIPID [Concomitant]
     Dosage: 1 DOSAGE FORMS
     Route: 041
     Dates: start: 20101201, end: 20101202
  77. MORPHINE [Concomitant]
     Dosage: 20 MILLIGRAM
     Route: 051
     Dates: start: 20101125, end: 20101126
  78. MORPHINE [Concomitant]
     Dosage: 5 MILLIGRAM
     Route: 051
     Dates: start: 20101130, end: 20101201
  79. HUMULIN R [Concomitant]
     Dosage: 50 IU (INTERNATIONAL UNIT)
     Route: 051
     Dates: start: 20101125, end: 20101126
  80. HUMULIN R [Concomitant]
     Dosage: 25 IU (INTERNATIONAL UNIT)
     Route: 058
     Dates: start: 20101201, end: 20101202
  81. HUMULIN R [Concomitant]
     Dosage: 18 IU (INTERNATIONAL UNIT)
     Route: 051
     Dates: start: 20101204, end: 20101204
  82. NITRAZEPAM [Concomitant]
     Dosage: 16 DOSAGE FORMS
     Route: 051
     Dates: start: 20101125, end: 20101125
  83. NITRAZEPAM [Concomitant]
     Dosage: .5 DOSAGE FORMS
     Route: 051
     Dates: start: 20101201, end: 20101202
  84. NITRAZEPAM [Concomitant]
     Route: 051
     Dates: start: 20101203, end: 20101204
  85. NITRAZEPAM [Concomitant]
     Dosage: 5 MILLIGRAM
     Route: 051
     Dates: start: 20101204, end: 20101204
  86. NITRAZEPAM [Concomitant]
     Route: 051
     Dates: start: 20101205, end: 20101206
  87. LEVOPHED [Concomitant]
     Dosage: 2 DOSAGE FORMS
     Route: 051
     Dates: start: 20101201, end: 20101202
  88. LEVOPHED [Concomitant]
     Dosage: 2 DOSAGE FORMS
     Route: 051
     Dates: start: 20101202, end: 20101205
  89. NEXIUM [Concomitant]
     Dosage: 80 MILLIGRAM
     Route: 051
     Dates: start: 20101125, end: 20101127
  90. DEXTROSE [Concomitant]
     Dosage: 500 OTHER
     Route: 041
     Dates: start: 20101125, end: 20101126
  91. DEXTROSE [Concomitant]
     Dosage: 50 OTHER
     Route: 041
     Dates: start: 20101201, end: 20101202
  92. DEXTROSE [Concomitant]
     Dosage: 2 DOSAGE FORMS
     Route: 041
     Dates: start: 20101204, end: 20101205
  93. HERBESSER [Concomitant]
     Indication: HYPERTENSION
     Dosage: 10 MILLIGRAM
     Route: 051
     Dates: start: 20101125, end: 20101126
  94. HIRUDOID [Concomitant]
     Route: 062
     Dates: start: 20101126, end: 20101207
  95. PRIMPERAN TAB [Concomitant]
     Dosage: 3 DOSAGE FORMS
     Route: 051
     Dates: start: 20101122, end: 20101124
  96. PRIMPERAN TAB [Concomitant]
     Dosage: 30 MILLIGRAM
     Route: 051
     Dates: start: 20101128, end: 20101201
  97. NINCORT [Concomitant]
     Route: 065
     Dates: start: 20101101, end: 20101112
  98. SCANOL [Concomitant]
     Dosage: 2000 MILLIGRAM
     Route: 065
     Dates: start: 20101124, end: 20101207
  99. AUGMENTIN [Concomitant]
     Dosage: 2400 MILLIGRAM
     Route: 051
     Dates: start: 20101106, end: 20101115
  100. TRANSAMIN [Concomitant]
     Dosage: 500 MILLIGRAM
     Route: 051
     Dates: start: 20101108, end: 20101110
  101. SEROQUEL [Concomitant]
     Dosage: 25 MILLIGRAM
     Route: 048
     Dates: start: 20101113, end: 20101115
  102. ASPIRIN [Concomitant]
     Dosage: 1 TABLET
     Route: 048
     Dates: start: 20101116, end: 20101123
  103. NAPROXEN [Concomitant]
     Dosage: 1 TABLET
     Route: 048
     Dates: start: 20101120, end: 20101121
  104. HUMULIN R [Concomitant]
     Dosage: 20 IU (INTERNATIONAL UNIT)
     Route: 051
     Dates: start: 20101124, end: 20101125
  105. HUMULIN R [Concomitant]
     Dosage: 40 IU (INTERNATIONAL UNIT)
     Route: 051
     Dates: start: 20101129, end: 20101201
  106. HUMULIN R [Concomitant]
     Dosage: 10 IU (INTERNATIONAL UNIT)
     Route: 051
     Dates: start: 20101206
  107. NITRAZEPAM [Concomitant]
     Dosage: 2 DOSAGE FORMS
     Route: 051
     Dates: start: 20101124, end: 20101125
  108. NITRAZEPAM [Concomitant]
     Dosage: 5 DOSAGE FORMS
     Route: 051
     Dates: start: 20101127, end: 20101129
  109. NITRAZEPAM [Concomitant]
     Dosage: 5 MILLIGRAM
     Route: 051
     Dates: start: 20101203, end: 20101204
  110. LEVOPHED [Concomitant]
     Dosage: 2 DOSAGE FORMS
     Route: 051
     Dates: start: 20101124, end: 20101125
  111. LEVOPHED [Concomitant]
     Dosage: 2 DOSAGE FORMS
     Route: 051
     Dates: start: 20101202, end: 20101202
  112. HEPARIN [Concomitant]
     Route: 051
     Dates: start: 20101126, end: 20101130
  113. DEXTROSE [Concomitant]
     Dosage: 500 OTHER
     Route: 041
     Dates: start: 20101204, end: 20101205
  114. HERBESSER [Concomitant]
     Dosage: 90 UNKNOWN
     Route: 065
     Dates: start: 20101127, end: 20101128
  115. MOPRIDE FC [Concomitant]
     Dosage: 15 MILLIGRAM
     Route: 065
     Dates: start: 20101201, end: 20101201
  116. DEXTROSE 5% [Concomitant]
     Dosage: 250 OTHER
     Route: 041
     Dates: start: 20101201, end: 20101202
  117. DEXTROSE 5% [Concomitant]
     Dosage: 250 OTHER
     Route: 041
     Dates: start: 20101202, end: 20101202
  118. RED BLOOD CELLS [Concomitant]
     Route: 065
     Dates: start: 20101123, end: 20101123
  119. DEXAMETHASONE [Suspect]
     Indication: MULTIPLE MYELOMA
     Dosage: 20 MILLIGRAM
     Route: 065
     Dates: start: 20101116, end: 20101207
  120. ULTRACET [Concomitant]
     Dosage: 3 TABLET
     Route: 048
     Dates: start: 20101022, end: 20101113
  121. SCANOL [Concomitant]
     Dosage: 2000 MILLIGRAM
     Route: 048
     Dates: start: 20101120, end: 20101124
  122. AUGMENTIN [Concomitant]
     Dosage: 1200 MILLIGRAM
     Route: 051
     Dates: start: 20101116, end: 20101117
  123. TRANSAMIN [Concomitant]
     Dosage: 3 DOSAGE FORMS
     Route: 051
     Dates: start: 20101203, end: 20101206
  124. ZOLPIDEM [Concomitant]
     Dosage: 6.2 UNKNOWN
     Route: 048
     Dates: start: 20101111, end: 20101113
  125. SEROQUEL [Concomitant]
     Dosage: 25 MILLIGRAM
     Route: 065
     Dates: start: 20101127, end: 20101127
  126. ALLERMIN [Concomitant]
     Dosage: 5 MILLIGRAM/MILLILITERS
     Route: 051
     Dates: start: 20101115, end: 20101116
  127. ALLERMIN [Concomitant]
     Dosage: 1 DOSAGE FORMS
     Route: 051
     Dates: start: 20101202, end: 20101203
  128. SMOFLIPID [Concomitant]
     Dosage: 1 DOSAGE FORMS
     Route: 041
     Dates: start: 20101116, end: 20101118
  129. PISUTAM [Concomitant]
     Dosage: 6.75 GRAM
     Route: 051
     Dates: start: 20101117, end: 20101124
  130. MORPHINE [Concomitant]
     Dosage: 20 MILLIGRAM
     Route: 051
     Dates: start: 20101125, end: 20101128
  131. MORPHINE [Concomitant]
     Dosage: 4 TABLET
     Route: 065
     Dates: start: 20101130, end: 20101204
  132. HUMULIN R [Concomitant]
     Dosage: 8 IU (INTERNATIONAL UNIT)
     Route: 058
     Dates: start: 20101124, end: 20101125
  133. HUMULIN R [Concomitant]
     Dosage: 28 IU (INTERNATIONAL UNIT)
     Route: 051
     Dates: start: 20101202, end: 20101203
  134. NITRAZEPAM [Concomitant]
     Dosage: 24 DOSAGE FORMS
     Route: 051
     Dates: start: 20101204, end: 20101204
  135. LEVOPHED [Concomitant]
     Dosage: 2 DOSAGE FORMS
     Route: 051
     Dates: start: 20101202, end: 20101203
  136. HEPARIN [Concomitant]
     Route: 051
     Dates: start: 20101206
  137. DEXTROSE [Concomitant]
     Dosage: 50 OTHER
     Route: 041
     Dates: start: 20101201, end: 20101202
  138. HERBESSER [Concomitant]
     Dosage: 30 UNKNOWN
     Route: 065
     Dates: start: 20101127, end: 20101127
  139. HERBESSER [Concomitant]
     Dosage: 10 MILLIGRAM
     Route: 051
     Dates: start: 20101206, end: 20101206
  140. EVAC ENEMA [Concomitant]
     Route: 054
     Dates: start: 20101129
  141. MOSAPRIDE CITRATE [Concomitant]
     Dosage: 3 TABLET
     Route: 065
     Dates: start: 20101130, end: 20101201
  142. CALOWLIN [Concomitant]
     Dosage: 2001 MILLIGRAM
     Route: 065
     Dates: start: 20101202, end: 20101205
  143. CALOWLIN [Concomitant]
     Dosage: 2001 MILLIGRAM
     Route: 065
     Dates: start: 20101205
  144. METRONIDAZOLE [Concomitant]
     Dosage: 3 TABLET
     Route: 048
     Dates: start: 20101203, end: 20101203
  145. LIPOFUNDIN [Concomitant]
     Indication: PROPHYLAXIS
     Route: 041
     Dates: start: 20101204
  146. RED BLOOD CELLS [Concomitant]
     Route: 065
     Dates: start: 20101125, end: 20101125
  147. ATIVAN [Concomitant]
     Dosage: .5 MILLIGRAM
     Route: 048
     Dates: start: 20101110, end: 20101111
  148. NORVASC [Concomitant]
     Dosage: 10 MILLIGRAM
     Route: 065
     Dates: start: 20101130, end: 20101201
  149. ALLERMIN [Concomitant]
     Dosage: 1 DOSAGE FORMS
     Route: 051
     Dates: start: 20101124, end: 20101125
  150. ALLERMIN [Concomitant]
     Dosage: 5 MILLIGRAM/MILLILITERS
     Route: 051
     Dates: start: 20101126, end: 20101127
  151. ALLERMIN [Concomitant]
     Dosage: 5 MILLIGRAM/MILLILITERS
     Route: 051
     Dates: start: 20101203, end: 20101204
  152. GLYCAL-AMIN [Concomitant]
     Dosage: 1 DOSAGE FORMS
     Route: 041
     Dates: start: 20101118, end: 20101123
  153. SMOFLIPID [Concomitant]
     Dosage: 1 DOSAGE FORMS
     Route: 041
     Dates: start: 20101116, end: 20101117
  154. LASIX [Concomitant]
     Dosage: 20 DOSAGE FORMS
     Route: 051
     Dates: start: 20101124, end: 20101124
  155. HUMULIN R [Concomitant]
     Dosage: 25 IU (INTERNATIONAL UNIT)
     Route: 051
     Dates: start: 20101203, end: 20101204
  156. NITRAZEPAM [Concomitant]
     Dosage: 12 DOSAGE FORMS
     Route: 051
     Dates: start: 20101124, end: 20101125
  157. NITRAZEPAM [Concomitant]
     Dosage: 48 DOSAGE FORMS
     Route: 051
     Dates: start: 20101206
  158. LEVOPHED [Concomitant]
     Dosage: 2 DOSAGE FORMS
     Route: 051
     Dates: start: 20101126, end: 20101127
  159. NEXIUM [Concomitant]
     Dosage: 80 MILLIGRAM
     Route: 051
     Dates: start: 20101125, end: 20101125
  160. AMIYU [Concomitant]
     Dosage: 1440 DOSAGE FORMS
     Route: 041
     Dates: start: 20101202
  161. HERBESSER [Concomitant]
     Dosage: 120 UNKNOWN
     Route: 065
     Dates: start: 20101130, end: 20101201
  162. BONEFOS [Concomitant]
     Dosage: 800 MILLIGRAM
     Route: 048
     Dates: start: 20101025, end: 20101124
  163. PRIMPERAN TAB [Concomitant]
     Dosage: 15 MILLIGRAM
     Route: 048
     Dates: start: 20101101, end: 20101101
  164. SCANOL [Concomitant]
     Dosage: 2000 MILLIGRAM
     Route: 048
     Dates: start: 20101106, end: 20101117
  165. GLYCAL-AMIN [Concomitant]
     Dosage: 1 OTHER
     Route: 041
     Dates: start: 20101116, end: 20101118
  166. SMOFLIPID [Concomitant]
     Dosage: 1 DOSAGE FORMS
     Route: 041
     Dates: start: 20101125, end: 20101125
  167. LASIX [Concomitant]
     Dosage: 1 DOSAGE FORMS
     Route: 051
     Dates: start: 20101123, end: 20101124
  168. CALGLON [Concomitant]
     Dosage: 2 DOSAGE FORMS
     Route: 051
     Dates: start: 20101124, end: 20101125
  169. MORPHINE [Concomitant]
     Dosage: 3 MILLIGRAM
     Route: 051
     Dates: start: 20101124, end: 20101125
  170. NITRAZEPAM [Concomitant]
     Dosage: 12 DOSAGE FORMS
     Route: 051
     Dates: start: 20101125, end: 20101125
  171. NITRAZEPAM [Concomitant]
     Dosage: 24 DOSAGE FORMS
     Route: 051
     Dates: start: 20101125, end: 20101127
  172. NITRAZEPAM [Concomitant]
     Dosage: 24 DOSAGE FORMS
     Route: 051
     Dates: start: 20101204, end: 20101205
  173. NS [Concomitant]
     Dosage: 100 MILLILITER
     Route: 041
     Dates: start: 20101124, end: 20101125
  174. AMIYU [Concomitant]
     Dosage: 1 DOSAGE FORMS
     Route: 041
     Dates: start: 20101125, end: 20101127
  175. DUASMA [Concomitant]
     Route: 055
     Dates: start: 20101125, end: 20101207
  176. LACTUL [Concomitant]
     Indication: PROPHYLAXIS
     Route: 065
     Dates: start: 20101129, end: 20101201
  177. DEXTROSE 5% [Concomitant]
     Dosage: 250 OTHER
     Route: 041
     Dates: start: 20101207, end: 20101207
  178. ROLIKAN [Concomitant]
     Route: 041
     Dates: start: 20101203, end: 20101205
  179. CALOWLIN [Concomitant]
     Dosage: 2001 MILLIGRAM
     Route: 048
     Dates: start: 20101202, end: 20101202

REACTIONS (10)
  - RENAL IMPAIRMENT [None]
  - DISSEMINATED INTRAVASCULAR COAGULATION [None]
  - SEPSIS [None]
  - PNEUMONIA [None]
  - PROSTATE CANCER [None]
  - RESPIRATORY FAILURE [None]
  - HYPOKALAEMIA [None]
  - SEPTIC SHOCK [None]
  - METABOLIC ACIDOSIS [None]
  - HYPONATRAEMIA [None]
